FAERS Safety Report 7457539-4 (Version None)
Quarter: 2011Q2

REPORT INFORMATION
  Report Type: 
  Country: None (occurrence: None)
  Receive Date: 20110504
  Receipt Date: 20110428
  Transmission Date: 20111010
  Serious: Yes (Hospitalization, Other)
  Sender: FDA-Public Use
  Company Number: US-ABBOTT-11P-163-0722393-00

PATIENT
  Sex: Male
  Weight: 79.45 kg

DRUGS (8)
  1. VICODIN [Concomitant]
     Indication: BACK DISORDER
  2. VITAMIN D [Concomitant]
     Indication: VITAMIN SUPPLEMENTATION
  3. FLOMAX [Concomitant]
     Indication: PROSTATOMEGALY
  4. VICODIN [Concomitant]
     Indication: ARTHRALGIA
  5. HUMIRA [Suspect]
     Indication: RHEUMATOID ARTHRITIS
     Dates: start: 20100601
  6. MOBIC [Concomitant]
     Indication: ARTHRITIS
  7. PRILOSEC [Concomitant]
     Indication: GASTROOESOPHAGEAL REFLUX DISEASE
  8. LORAZEPAM [Concomitant]
     Indication: INSOMNIA

REACTIONS (6)
  - VITREOUS FLOATERS [None]
  - INJECTION SITE PAIN [None]
  - SPINAL COLUMN STENOSIS [None]
  - BREAST SWELLING [None]
  - BREAST TENDERNESS [None]
  - CATARACT [None]
